FAERS Safety Report 22009264 (Version 1)
Quarter: 2023Q1

REPORT INFORMATION
  Report Type: Spontaneous
  Country: JP (occurrence: JP)
  Receive Date: 20230220
  Receipt Date: 20230220
  Transmission Date: 20230418
  Serious: Yes (Hospitalization)
  Sender: FDA-Public Use
  Company Number: JP-MACLEODS PHARMACEUTICALS US LTD-MAC2023039818

PATIENT

DRUGS (2)
  1. DONEPEZIL [Suspect]
     Active Substance: DONEPEZIL
     Indication: Dementia with Lewy bodies
     Dosage: 5 MILLIGRAM, QD
     Route: 048
     Dates: start: 200703
  2. DONEPEZIL [Suspect]
     Active Substance: DONEPEZIL
     Dosage: 3 MILLIGRAM, QD
     Route: 048
     Dates: start: 200903

REACTIONS (1)
  - Torticollis [Recovered/Resolved]
